FAERS Safety Report 5024802-6 (Version None)
Quarter: 2006Q2

REPORT INFORMATION
  Report Type: 
  Country: None (occurrence: None)
  Receive Date: 20060613
  Receipt Date: 20060601
  Transmission Date: 20061013
  Serious: Yes (Other)
  Sender: FDA-Public Use
  Company Number: PHBS2006JP08331

PATIENT
  Age: 58 Year
  Sex: Female

DRUGS (2)
  1. VOLTAREN [Suspect]
     Indication: HEADACHE
     Dosage: 50 MG/DAY
     Route: 054
     Dates: start: 19990101, end: 19990818
  2. SEDES G [Suspect]
     Indication: HEADACHE
     Dosage: 3 G/DAY
     Route: 048
     Dates: end: 19991001

REACTIONS (4)
  - ANAEMIA [None]
  - HAEMOGLOBIN DECREASED [None]
  - HYPOPROTEINAEMIA [None]
  - SMALL INTESTINE ULCER [None]
